FAERS Safety Report 25040925 (Version 1)
Quarter: 2025Q1

REPORT INFORMATION
  Report Type: Spontaneous
  Country: TR (occurrence: TR)
  Receive Date: 20250305
  Receipt Date: 20250305
  Transmission Date: 20250409
  Serious: Yes (Other)
  Sender: AUROBINDO
  Company Number: TR-AUROBINDO-AUR-APL-2022-042762

PATIENT

DRUGS (2)
  1. MELPHALAN [Suspect]
     Active Substance: MELPHALAN
     Indication: Monoclonal gammopathy
     Route: 065
  2. MELPHALAN [Suspect]
     Active Substance: MELPHALAN
     Indication: Light chain disease

REACTIONS (1)
  - Drug ineffective [Unknown]
